FAERS Safety Report 10669687 (Version 2)
Quarter: 2014Q4

REPORT INFORMATION
  Report Type: Spontaneous
  Country: JP (occurrence: JP)
  Receive Date: 20141222
  Receipt Date: 20141229
  Transmission Date: 20150529
  Serious: Yes (Hospitalization, Other)
  Sender: FDA-Public Use
  Company Number: JP-GLAXOSMITHKLINE-JP2014JPN036950

PATIENT
  Age: 79 Year
  Sex: Male

DRUGS (7)
  1. MUCOSTA [Concomitant]
     Active Substance: REBAMIPIDE
     Dosage: UNK
  2. VALTREX [Suspect]
     Active Substance: VALACYCLOVIR HYDROCHLORIDE
     Indication: ORAL HERPES
     Dosage: 500 MG, BID
     Route: 048
     Dates: start: 20130528, end: 20130531
  3. PURSENNID [Concomitant]
     Active Substance: SENNOSIDES A AND B
     Dosage: UNK
  4. BUFFERIN [Concomitant]
     Active Substance: ASPIRIN
     Dosage: UNK
  5. PANTOSIN [Concomitant]
     Active Substance: PANTETHINE
     Dosage: UNK
  6. MAGNESIUM OXIDE. [Concomitant]
     Active Substance: MAGNESIUM OXIDE
     Dosage: UNK
  7. UBRETID [Concomitant]
     Active Substance: DISTIGMINE BROMIDE
     Dosage: UNK

REACTIONS (1)
  - Urinary retention [Recovered/Resolved]

NARRATIVE: CASE EVENT DATE: 20130531
